FAERS Safety Report 8003132-4 (Version None)
Quarter: 2011Q4

REPORT INFORMATION
  Report Type: 
  Country: None (occurrence: None)
  Receive Date: 20111222
  Receipt Date: 20111208
  Transmission Date: 20120403
  Serious: Yes (Other)
  Sender: FDA-Public Use
  Company Number: PHHY2009TR47734

PATIENT
  Age: 65 Year
  Sex: Female
  Weight: 84 kg

DRUGS (1)
  1. FEMARA [Suspect]
     Dosage: 2.5 MG, UNK
     Route: 048
     Dates: start: 20090319, end: 20091030

REACTIONS (4)
  - METASTASES TO LYMPH NODES [None]
  - PARATRACHEAL LYMPHADENOPATHY [None]
  - CARCINOEMBRYONIC ANTIGEN INCREASED [None]
  - CARBOHYDRATE ANTIGEN 15-3 INCREASED [None]
